FAERS Safety Report 7860211-X (Version None)
Quarter: 2011Q4

REPORT INFORMATION
  Report Type: 
  Country: None (occurrence: None)
  Receive Date: 20111027
  Receipt Date: 20111020
  Transmission Date: 20120403
  Serious: Yes (Other)
  Sender: FDA-Public Use
  Company Number: US-GILEAD-2011-0045143

PATIENT

DRUGS (5)
  1. LETAIRIS [Suspect]
     Indication: ATRIAL SEPTAL DEFECT
  2. LETAIRIS [Suspect]
     Indication: VENTRICULAR SEPTAL DEFECT
  3. TYVASO [Concomitant]
  4. LETAIRIS [Suspect]
     Indication: PULMONARY HYPERTENSION
     Dosage: 10 MG, UNK
     Route: 048
     Dates: start: 20090422
  5. LETAIRIS [Suspect]
     Indication: HEART DISEASE CONGENITAL

REACTIONS (1)
  - OXYGEN SATURATION DECREASED [None]
